FAERS Safety Report 9725937 (Version 2)
Quarter: 2013Q4

REPORT INFORMATION
  Report Type: Spontaneous
  Country: DE (occurrence: DE)
  Receive Date: 20131203
  Receipt Date: 20131203
  Transmission Date: 20140711
  Serious: Yes (Life-Threatening)
  Sender: FDA-Public Use
  Company Number: DE-PFIZER INC-2013311064

PATIENT
  Age: 20 Year
  Sex: Female

DRUGS (1)
  1. SAYANA [Suspect]
     Dosage: UNK
     Route: 058

REACTIONS (3)
  - Sneezing [Recovered/Resolved]
  - Paraesthesia oral [Recovered/Resolved]
  - Urticaria [Recovered/Resolved]
